FAERS Safety Report 9913946 (Version 3)
Quarter: 2014Q2

REPORT INFORMATION
  Report Type: Spontaneous
  Country: IT (occurrence: IT)
  Receive Date: 20140220
  Receipt Date: 20140512
  Transmission Date: 20141212
  Serious: Yes (Other)
  Sender: FDA-Public Use
  Company Number: IT-PFIZER INC-2014039569

PATIENT
  Age: 60 Year
  Sex: Male

DRUGS (2)
  1. IBUPROFEN [Suspect]
     Indication: TENDON PAIN
     Dosage: 1 TABLET, TOTAL
     Route: 048
     Dates: start: 20140110, end: 20140110
  2. LANSOPRAZOLE [Suspect]
     Indication: TENDON PAIN
     Dosage: 1 TABLET, TOTAL
     Route: 048
     Dates: start: 20140110, end: 20140110

REACTIONS (3)
  - Drug hypersensitivity [Recovering/Resolving]
  - Lip oedema [Recovering/Resolving]
  - Rash generalised [Recovering/Resolving]
